FAERS Safety Report 6969233-4 (Version None)
Quarter: 2010Q3

REPORT INFORMATION
  Report Type: 
  Country: None (occurrence: None)
  Receive Date: 20100907
  Receipt Date: 20100826
  Transmission Date: 20110219
  Serious: Yes (Hospitalization)
  Sender: FDA-Public Use
  Company Number: FR-WYE-H17199110

PATIENT
  Sex: Female

DRUGS (5)
  1. EUPANTOL [Suspect]
     Route: 048
     Dates: end: 20100727
  2. BI-PROFENID [Suspect]
     Route: 048
     Dates: end: 20100727
  3. ACETAMINOPHEN W/ PROPOXYPHENE HCL [Suspect]
     Route: 048
     Dates: end: 20100727
  4. ENALAPRIL MALEATE [Suspect]
     Dosage: 20 MG, UNSPECIFIED FREQUENCY
     Route: 048
     Dates: end: 20100727
  5. LASIX [Suspect]
     Route: 048
     Dates: end: 20100727

REACTIONS (5)
  - CONDITION AGGRAVATED [None]
  - HYPONATRAEMIA [None]
  - INAPPROPRIATE ANTIDIURETIC HORMONE SECRETION [None]
  - MALAISE [None]
  - RENAL FAILURE CHRONIC [None]
